FAERS Safety Report 13346738 (Version 5)
Quarter: 2017Q3

REPORT INFORMATION
  Report Type: Spontaneous
  Country: KR (occurrence: KR)
  Receive Date: 20170317
  Receipt Date: 20170823
  Transmission Date: 20171127
  Serious: Yes (Death, Other)
  Sender: FDA-Public Use
  Company Number: KR-009507513-1703KOR006801

PATIENT
  Age: 67 Year
  Sex: Male
  Weight: 50.4 kg

DRUGS (14)
  1. OMNICEF [Concomitant]
     Active Substance: CEFDINIR
     Indication: INFECTION PROPHYLAXIS
     Dosage: 100 MG, 1 CAPSULE, TID
     Route: 048
     Dates: start: 20161226, end: 20161231
  2. ULTRACET [Concomitant]
     Active Substance: ACETAMINOPHEN\TRAMADOL HYDROCHLORIDE
     Indication: CANCER PAIN
     Dosage: 1 TABLET, BID
     Route: 048
     Dates: start: 20161229
  3. MANNITOL. [Concomitant]
     Active Substance: MANNITOL
     Indication: PROPHYLAXIS
     Dosage: 100 ML, ONCE; STRENGTH: 15% 100ML
     Route: 042
     Dates: start: 20161229, end: 20161229
  4. LANSTON [Concomitant]
     Active Substance: LANSOPRAZOLE
     Indication: GASTROOESOPHAGEAL REFLUX PROPHYLAXIS
     Dosage: 30 MG, 1 TABLET, QD
     Route: 048
     Dates: start: 20161226
  5. SELBEX [Concomitant]
     Active Substance: TEPRENONE
     Indication: GASTROOESOPHAGEAL REFLUX PROPHYLAXIS
     Dosage: 1 CAPSULE, TID
     Route: 048
     Dates: start: 20161224
  6. EMEND (FOSAPREPITANT DIMEGLUMINE) [Suspect]
     Active Substance: FOSAPREPITANT DIMEGLUMINE
     Indication: PROPHYLAXIS OF NAUSEA AND VOMITING
     Dosage: 150 MG, ONCE
     Route: 042
     Dates: start: 20161229, end: 20161229
  7. DEXAMETHASONE. [Concomitant]
     Active Substance: DEXAMETHASONE
     Indication: PROPHYLAXIS OF NAUSEA AND VOMITING
     Dosage: 16 MG, QD
     Route: 048
     Dates: start: 20161229, end: 20170102
  8. OCODONE [Concomitant]
     Indication: CANCER PAIN
     Dosage: 5 MG, TID
     Route: 048
     Dates: start: 20170102
  9. CISPLATIN. [Concomitant]
     Active Substance: CISPLATIN
     Indication: TONGUE NEOPLASM MALIGNANT STAGE UNSPECIFIED
     Dosage: 90 MG, ONCE, CYCLE 1; STRENGTH: 50 MG/100ML
     Route: 042
     Dates: start: 20161229, end: 20161229
  10. SOLETON [Concomitant]
     Active Substance: ZALTOPROFEN
     Indication: CANCER PAIN
     Dosage: 80 MG, 1 TABLET, TID
     Route: 048
     Dates: start: 20161224, end: 20161231
  11. SURFOLASE [Concomitant]
     Indication: PROPHYLAXIS
     Dosage: 1 TABLET, BID
     Route: 048
     Dates: start: 20161226
  12. DEXAMETHASONE SODIUM PHOSPHATE. [Concomitant]
     Active Substance: DEXAMETHASONE SODIUM PHOSPHATE
     Indication: PROPHYLAXIS OF NAUSEA AND VOMITING
     Dosage: 8 MG, ONCE; STRENGTH: 5 MG/ML
     Route: 042
     Dates: start: 20161229, end: 20161229
  13. ALOXI [Concomitant]
     Active Substance: PALONOSETRON HYDROCHLORIDE
     Indication: PROPHYLAXIS OF NAUSEA AND VOMITING
     Dosage: 0.25 MG, ONCE
     Route: 042
     Dates: start: 20161229, end: 20161229
  14. DOCETAXEL. [Concomitant]
     Active Substance: DOCETAXEL
     Indication: TONGUE NEOPLASM MALIGNANT STAGE UNSPECIFIED
     Dosage: 90 MG, ONCE, CYCLE 1; STRENGTH: 80MG/4ML
     Route: 042
     Dates: start: 20161229, end: 20161229

REACTIONS (1)
  - Cardioplegia [Fatal]

NARRATIVE: CASE EVENT DATE: 20170111
